FAERS Safety Report 7210356-2 (Version None)
Quarter: 2010Q4

REPORT INFORMATION
  Report Type: 
  Country: None (occurrence: None)
  Receive Date: 20101202
  Receipt Date: 20101209
  Transmission Date: 20110411
  Serious: Yes (Disabling)
  Sender: FDA-Public Use
  Company Number: 2010025708

PATIENT
  Sex: Female
  Weight: 213 kg

DRUGS (1)
  1. CARIMUNE NF [Suspect]
     Dosage: (48 G 1X/MONTH INTRAVENOUS)
     Route: 042

REACTIONS (4)
  - DRUG INEFFECTIVE [None]
  - HEADACHE [None]
  - MUSCULAR WEAKNESS [None]
  - NEUROPATHY PERIPHERAL [None]
